FAERS Safety Report 18235100 (Version 1)
Quarter: 2020Q3

REPORT INFORMATION
  Report Type: Report from Study
  Country: PL (occurrence: PL)
  Receive Date: 20200905
  Receipt Date: 20200905
  Transmission Date: 20201103
  Serious: Yes (Other)
  Sender: FDA-Public Use
  Company Number: PL-ACCORD-199010

PATIENT
  Age: 71 Year
  Sex: Male

DRUGS (7)
  1. SPIRONOLACTONE. [Concomitant]
     Active Substance: SPIRONOLACTONE
     Indication: PRODUCT USED FOR UNKNOWN INDICATION
     Route: 065
  2. ZOFENOPRIL/ZOFENOPRIL CALCIUM [Concomitant]
     Active Substance: ZOFENOPRIL
     Indication: PRODUCT USED FOR UNKNOWN INDICATION
     Route: 065
  3. LERCANIDIPINE [Concomitant]
     Active Substance: LERCANIDIPINE
     Indication: PRODUCT USED FOR UNKNOWN INDICATION
     Route: 065
  4. DOXAZOSIN [Suspect]
     Active Substance: DOXAZOSIN MESYLATE
     Indication: HYPERTENSION
     Route: 065
  5. PARACETAMOL/TRAMADOL [Concomitant]
     Active Substance: ACETAMINOPHEN\TRAMADOL
     Indication: PRODUCT USED FOR UNKNOWN INDICATION
     Route: 065
  6. PROMAZINE [Interacting]
     Active Substance: PROMAZINE
     Indication: INSOMNIA
     Route: 065
  7. CHONDROITIN [Concomitant]
     Active Substance: CHONDROITIN
     Indication: PRODUCT USED FOR UNKNOWN INDICATION
     Route: 065

REACTIONS (4)
  - Drug interaction [Unknown]
  - Fall [Unknown]
  - Hypotension [Unknown]
  - Femoral neck fracture [Unknown]
